FAERS Safety Report 10063482 (Version 2)
Quarter: 2014Q2

REPORT INFORMATION
  Report Type: Report from Study
  Country: US (occurrence: US)
  Receive Date: 20140407
  Receipt Date: 20140407
  Transmission Date: 20141212
  Serious: Yes (Death)
  Sender: FDA-Public Use
  Company Number: US-B.I. PHARMACEUTICALS,INC./RIDGEFIELD-2014-BI-13083BI

PATIENT
  Age: 87 Year
  Sex: Male
  Weight: 111 kg

DRUGS (2)
  1. DABIGATRAN [Suspect]
     Indication: ATRIAL FIBRILLATION
     Dosage: 150 MG
     Route: 048
     Dates: start: 20140304, end: 20140321
  2. ANTIBIOTIC CREAM [Concomitant]
     Indication: LACERATION
     Route: 061

REACTIONS (1)
  - Sudden cardiac death [Fatal]
